FAERS Safety Report 5594663-5 (Version None)
Quarter: 2008Q1

REPORT INFORMATION
  Report Type: 
  Country: None (occurrence: None)
  Receive Date: 20080115
  Receipt Date: 20071231
  Transmission Date: 20080703
  Serious: Yes (Hospitalization)
  Sender: FDA-Public Use
  Company Number: DSA_31114_2008

PATIENT
  Sex: Female

DRUGS (7)
  1. LORAZEPAM [Suspect]
     Dosage: (4 MG 1X ORAL)
     Route: 048
     Dates: start: 20071228, end: 20071228
  2. ETHANOL (ALCOHOL - ETHANOL) [Suspect]
     Dosage: (ORAL)
     Route: 048
     Dates: start: 20071228, end: 20071228
  3. CIPROFLOXACIN [Suspect]
     Dosage: (ORAL)
     Route: 048
     Dates: start: 20071228, end: 20071228
  4. IBUPROFEN [Suspect]
     Dosage: (ORAL)
     Route: 048
     Dates: start: 20071228, end: 20071228
  5. METOCLOPRAMIDE [Suspect]
     Dosage: (ORAL)
     Route: 048
     Dates: start: 20071228, end: 20071228
  6. RANITIC (RANITIC - RANITIDINE HYDROCHLORIDE) [Suspect]
     Dosage: (ORAL)
     Route: 048
     Dates: start: 20071228, end: 20071228
  7. REMERGIL (REMERGIL - MIRTAZAPINE) 15 MG (NOT SPECIFIED) [Suspect]
     Dosage: (45 MG 1X ORAL)
     Route: 048
     Dates: start: 20071228, end: 20071228

REACTIONS (4)
  - APATHY [None]
  - BLOOD ALCOHOL INCREASED [None]
  - MULTIPLE DRUG OVERDOSE INTENTIONAL [None]
  - SUICIDE ATTEMPT [None]
